FAERS Safety Report 5681087-5 (Version None)
Quarter: 2008Q1

REPORT INFORMATION
  Report Type: 
  Country: None (occurrence: None)
  Receive Date: 20080325
  Receipt Date: 20080313
  Transmission Date: 20080703
  Serious: Yes (Life-Threatening, Hospitalization, Other)
  Sender: FDA-Public Use
  Company Number: POMP-1000097

PATIENT
  Age: 15 Month
  Sex: Female
  Weight: 9.3 kg

DRUGS (4)
  1. MYOZYME [Suspect]
     Indication: GLYCOGEN STORAGE DISEASE TYPE II
     Dosage: 40 MG/KG, Q2W, INTRAVENOUS
     Route: 042
     Dates: start: 20060308
  2. CAPTOPRIL [Concomitant]
  3. FUROSEMIDE [Concomitant]
  4. CARVEDILOL [Concomitant]

REACTIONS (17)
  - ALANINE AMINOTRANSFERASE INCREASED [None]
  - ASPARTATE AMINOTRANSFERASE INCREASED [None]
  - ATELECTASIS [None]
  - BRONCHIOLITIS [None]
  - CATHETER RELATED INFECTION [None]
  - GASTRIC HAEMORRHAGE [None]
  - LEFT VENTRICULAR HYPERTROPHY [None]
  - LYMPHOCYTOSIS [None]
  - NEUTROPENIA [None]
  - PNEUMOCOCCAL INFECTION [None]
  - PULSE ABSENT [None]
  - RESPIRATORY FAILURE [None]
  - SPUTUM CULTURE POSITIVE [None]
  - STAPHYLOCOCCAL INFECTION [None]
  - TORSADE DE POINTES [None]
  - VENTRICULAR FIBRILLATION [None]
  - VIRUS SEROLOGY TEST POSITIVE [None]
